FAERS Safety Report 18209378 (Version 4)
Quarter: 2020Q4

REPORT INFORMATION
  Report Type: Spontaneous
  Country: FR (occurrence: FR)
  Receive Date: 20200828
  Receipt Date: 20201021
  Transmission Date: 20210113
  Serious: Yes (Other)
  Sender: FDA-Public Use
  Company Number: FR-GILEAD-2020-0491834

PATIENT
  Age: 44 Year
  Sex: Female

DRUGS (1)
  1. ODEFSEY [Suspect]
     Active Substance: EMTRICITABINE\RILPIVIRINE HYDROCHLORIDE\TENOFOVIR ALAFENAMIDE FUMARATE
     Indication: PROPHYLAXIS AGAINST HIV INFECTION
     Dosage: UNK
     Route: 065
     Dates: start: 20200726, end: 20200820

REACTIONS (17)
  - Decreased appetite [Unknown]
  - Drug intolerance [Unknown]
  - Vaginal haemorrhage [Not Recovered/Not Resolved]
  - Menorrhagia [Unknown]
  - Psychotic disorder [Not Recovered/Not Resolved]
  - Premature menopause [Not Recovered/Not Resolved]
  - Abdominal pain [Unknown]
  - Suicidal ideation [Unknown]
  - Cold sweat [Recovered/Resolved]
  - Tremor [Recovered/Resolved]
  - Renal pain [Not Recovered/Not Resolved]
  - Overdose [Recovered/Resolved]
  - Off label use [Recovered/Resolved]
  - Vomiting [Recovered/Resolved]
  - Abdominal discomfort [Recovered/Resolved]
  - Liver injury [Unknown]
  - Back pain [Not Recovered/Not Resolved]

NARRATIVE: CASE EVENT DATE: 2020
